FAERS Safety Report 7844986-1 (Version None)
Quarter: 2011Q4

REPORT INFORMATION
  Report Type: 
  Country: None (occurrence: None)
  Receive Date: 20111025
  Receipt Date: 20111017
  Transmission Date: 20120403
  Serious: Yes (Hospitalization, Other)
  Sender: FDA-Public Use
  Company Number: BR-BAYER-2011-100378

PATIENT
  Sex: Female
  Weight: 3 kg

DRUGS (2)
  1. LEVONORGESTREL + ETHINYL ESTRADIOL [Suspect]
     Dosage: UNK
     Route: 064
     Dates: start: 20100801, end: 20110101
  2. LEVONORGESTREL + ETHINYL ESTRADIOL [Suspect]
     Dosage: UNK
     Route: 064
     Dates: start: 20100801, end: 20110101

REACTIONS (5)
  - FURUNCLE [None]
  - CARDIAC MURMUR [None]
  - PREMATURE BABY [None]
  - BACTERIAL INFECTION [None]
  - FATIGUE [None]
